FAERS Safety Report 4843040-0 (Version None)
Quarter: 2005Q4

REPORT INFORMATION
  Report Type: 
  Country: None (occurrence: None)
  Receive Date: 20051201
  Receipt Date: 20051011
  Transmission Date: 20060501
  Serious: Yes (Hospitalization)
  Sender: FDA-Public Use
  Company Number: FR-NOVOPROD-247694

PATIENT
  Age: 65 Year
  Sex: Male
  Weight: 50 kg

DRUGS (4)
  1. NOVOSEVEN [Suspect]
     Indication: GASTROINTESTINAL HAEMORRHAGE
     Dosage: 240 KIU, SINGLE
     Route: 042
     Dates: start: 20050724, end: 20050724
  2. HYDROCORTISONE [Concomitant]
     Dosage: 200 MG, QD
     Route: 042
     Dates: start: 20050706
  3. L-THYROXINE [Concomitant]
     Route: 048
     Dates: start: 20050722
  4. NOVOSEVEN [Suspect]
     Dosage: 120 KIU, SINGLE
     Route: 042
     Dates: start: 20050724, end: 20050724

REACTIONS (1)
  - CEREBROVASCULAR ACCIDENT [None]
